FAERS Safety Report 4390497-8 (Version None)
Quarter: 2004Q3

REPORT INFORMATION
  Report Type: 
  Country: None (occurrence: None)
  Receive Date: 20040701
  Receipt Date: 20040701
  Transmission Date: 20050211
  Serious: Yes (Life-Threatening, Hospitalization)
  Sender: FDA-Public Use
  Company Number: None

PATIENT
  Age: 38 Year
  Sex: Female
  Weight: 115.6672 kg

DRUGS (1)
  1. OXYFAST 20 MG/ML PURDUE PHARMA [Suspect]
     Indication: PAIN
     Dosage: 5-10  ML 4-6 HOURS ORAL
     Route: 048
     Dates: start: 20040625, end: 20040625

REACTIONS (2)
  - MEDICATION ERROR [None]
  - RESPIRATORY RATE DECREASED [None]
